FAERS Safety Report 15821697 (Version 2)
Quarter: 2019Q1

REPORT INFORMATION
  Report Type: Spontaneous
  Country: DE (occurrence: DE)
  Receive Date: 20190114
  Receipt Date: 20190215
  Transmission Date: 20190417
  Serious: Yes (Hospitalization, Other)
  Sender: FDA-Public Use
  Company Number: DE-PFIZER INC-2019012890

PATIENT
  Sex: Female

DRUGS (5)
  1. PERJETA [Suspect]
     Active Substance: PERTUZUMAB
     Indication: BREAST CANCER
     Route: 065
  2. EPIRUBICIN HCL [Suspect]
     Active Substance: EPIRUBICIN HYDROCHLORIDE
     Indication: BREAST CANCER
     Route: 065
  3. CYCLOPHOSPHAMIDE. [Suspect]
     Active Substance: CYCLOPHOSPHAMIDE
     Indication: BREAST CANCER
     Route: 065
  4. HERCEPTIN [Suspect]
     Active Substance: TRASTUZUMAB
     Indication: BREAST CANCER
     Route: 065
  5. 5-FLUOROURACIL [FLUOROURACIL] [Suspect]
     Active Substance: FLUOROURACIL
     Indication: BREAST CANCER
     Route: 065

REACTIONS (2)
  - Cardiac arrest [Recovering/Resolving]
  - Influenza like illness [Recovering/Resolving]
